FAERS Safety Report 5629608-2 (Version None)
Quarter: 2008Q1

REPORT INFORMATION
  Report Type: 
  Country: None (occurrence: None)
  Receive Date: 20080214
  Receipt Date: 20080204
  Transmission Date: 20080703
  Serious: Yes (Death)
  Sender: FDA-Public Use
  Company Number: 2008-01217

PATIENT
  Age: 17 Year
  Sex: Male

DRUGS (4)
  1. ADDERALL 12.5 [Suspect]
  2. METHADONE HCL [Suspect]
  3. COCAINE(COCAINE) [Suspect]
  4. ETHANOL(ETHANOL) [Suspect]

REACTIONS (1)
  - CARDIO-RESPIRATORY ARREST [None]
